FAERS Safety Report 21728591 (Version 1)
Quarter: 2022Q4

REPORT INFORMATION
  Report Type: Report from Study
  Country: AT (occurrence: AT)
  Receive Date: 20221214
  Receipt Date: 20221214
  Transmission Date: 20230113
  Serious: Yes (Other)
  Sender: FDA-Public Use
  Company Number: AT-BRISTOL-MYERS SQUIBB COMPANY-2022-101576

PATIENT
  Age: 72 Year
  Sex: Male

DRUGS (1)
  1. POMALIDOMIDE [Suspect]
     Active Substance: POMALIDOMIDE
     Indication: Plasma cell myeloma
     Dosage: FREQ: D1-D21
     Route: 048
     Dates: start: 20190514, end: 20190913

REACTIONS (2)
  - Toxicity to various agents [Unknown]
  - Secondary immunodeficiency [Unknown]
